FAERS Safety Report 7276741-8 (Version None)
Quarter: 2011Q1

REPORT INFORMATION
  Report Type: 
  Country: None (occurrence: None)
  Receive Date: 20110204
  Receipt Date: 20110201
  Transmission Date: 20110831
  Serious: Yes (Other)
  Sender: FDA-Public Use
  Company Number: AU-PFIZER INC-2010178811

PATIENT
  Age: 57 Year
  Sex: Male
  Weight: 103 kg

DRUGS (17)
  1. KENACOMB [Concomitant]
     Dosage: UNK
     Route: 061
  2. KEPPRA [Concomitant]
     Dosage: 1000 MG, 2X/DAY
     Route: 048
  3. CODALGIN [Concomitant]
     Dosage: 500/30MG TWO THREE TIMES DAILY AS NEEDED
     Route: 048
  4. DERALIN [Concomitant]
     Dosage: 20 MG, 2X/DAY
     Route: 048
  5. LAMICTAL [Concomitant]
     Dosage: 50 MG, 2X/DAY
     Route: 048
  6. EPILIM [Concomitant]
     Dosage: 500 MG, 1X/DAY AT NIGHT
     Route: 048
  7. PRILOSEC [Concomitant]
     Dosage: 20 MG, 2X/DAY
     Route: 048
  8. LYRICA [Suspect]
     Dosage: 300 MG, 1X/DAY
     Route: 048
     Dates: start: 20101201
  9. EFFEXOR XR [Concomitant]
     Dosage: 75 MG, AT NIGHT
     Route: 048
  10. INDOCIN [Concomitant]
     Dosage: 25 MG, 3X/DAY
     Route: 048
  11. ORDINE [Concomitant]
     Dosage: 10MG/ML 2-3ML AS NEEDED
     Route: 048
  12. DIAZEPAM [Concomitant]
     Dosage: 2 MG, DAILY AS NEEDED
     Route: 048
  13. ENDEP [Concomitant]
     Dosage: 25 MG, AT NIGHT
     Route: 048
  14. KAPANOL [Concomitant]
     Dosage: 50 MG, 2X/DAY
     Route: 048
  15. SPIRONOLACTONE [Concomitant]
     Dosage: 50 MG, 2X/DAY
     Route: 048
  16. EFFEXOR XR [Concomitant]
     Dosage: 150 MG, IN THE MORNING
     Route: 048
  17. LYRICA [Suspect]
     Indication: NEURALGIA
     Dosage: 150 MG, 1X/DAY
     Route: 048
     Dates: start: 20101029

REACTIONS (4)
  - SOMNOLENCE [None]
  - INCOHERENT [None]
  - INTENTIONAL DRUG MISUSE [None]
  - PSYCHOTIC DISORDER [None]
